FAERS Safety Report 23105640 (Version 2)
Quarter: 2023Q4

REPORT INFORMATION
  Report Type: Spontaneous
  Country: US (occurrence: US)
  Receive Date: 20231025
  Receipt Date: 20231116
  Transmission Date: 20240110
  Serious: Yes (Hospitalization, Other)
  Sender: FDA-Public Use
  Company Number: US-PFIZER INC-202300336858

PATIENT
  Age: 63 Year
  Sex: Male
  Weight: 136.08 kg

DRUGS (6)
  1. PAXLOVID [Suspect]
     Active Substance: NIRMATRELVIR\RITONAVIR
     Indication: COVID-19 treatment
     Dosage: PF-07321332 300 MG]/[RITONAVIR 100 MG]; 2X/DAY
     Route: 048
     Dates: start: 20231018
  2. ASPIRIN [Concomitant]
     Active Substance: ASPIRIN
     Indication: Spinal stroke
     Dosage: 81 MG, 1X/DAY
     Route: 048
  3. MONTELUKAST [Concomitant]
     Active Substance: MONTELUKAST SODIUM
     Dosage: 10 MG, 1X/DAY
  4. PANTOPRAZOLE [Concomitant]
     Active Substance: PANTOPRAZOLE
     Indication: Gastrooesophageal reflux disease
     Dosage: 40 MG, 1X/DAY
     Route: 048
  5. BUSPIRONE [Concomitant]
     Active Substance: BUSPIRONE HYDROCHLORIDE
     Dosage: 15 MG, 2X/DAY
     Route: 048
  6. SENNA TABS [Concomitant]
     Active Substance: SENNOSIDES A AND B
     Indication: Gastrooesophageal reflux disease
     Dosage: UNK, 1X/DAY [8.6MG AND THEN IT IS TWO DIFFERENT DOSES IT SO IT MUST BE TWO MEDICINE, 8.6-50 MG]
     Route: 048

REACTIONS (4)
  - Bradycardia [Unknown]
  - Dizziness [Unknown]
  - Hyperhidrosis [Unknown]
  - Expired product administered [Unknown]

NARRATIVE: CASE EVENT DATE: 20231018
